FAERS Safety Report 7579219-7 (Version None)
Quarter: 2011Q2

REPORT INFORMATION
  Report Type: 
  Country: None (occurrence: None)
  Receive Date: 20110628
  Receipt Date: 20110616
  Transmission Date: 20111010
  Serious: Yes (Other)
  Sender: FDA-Public Use
  Company Number: AU-ELI_LILLY_AND_COMPANY-AU201104000532

PATIENT
  Sex: Female

DRUGS (2)
  1. PROZAC [Suspect]
     Indication: MAJOR DEPRESSION
     Dosage: 60 MG, QD
     Dates: start: 20080101
  2. QUETIAPINE [Concomitant]
     Dosage: 12.5 MG, PRN

REACTIONS (1)
  - DERMATITIS ATOPIC [None]
